FAERS Safety Report 18285104 (Version 4)
Quarter: 2020Q4

REPORT INFORMATION
  Report Type: Spontaneous
  Country: US (occurrence: US)
  Receive Date: 20200918
  Receipt Date: 20201230
  Transmission Date: 20210113
  Serious: No
  Sender: FDA-Public Use
  Company Number: US-PFIZER INC-2020357977

PATIENT
  Age: 61 Year
  Sex: Female

DRUGS (1)
  1. IBRANCE [Suspect]
     Active Substance: PALBOCICLIB
     Dosage: 100 MG, CYCLIC (100 MG QD (ONCE A DAY) 21 DAYS Q (EVERY) 28 DAYS)
     Dates: start: 20200826

REACTIONS (12)
  - Product dose omission issue [Unknown]
  - Alopecia [Unknown]
  - Eye pain [Unknown]
  - Dry skin [Unknown]
  - Dry mouth [Unknown]
  - Stomatitis [Recovering/Resolving]
  - Hypoaesthesia [Unknown]
  - Constipation [Unknown]
  - Pyrexia [Unknown]
  - Dry eye [Unknown]
  - Diarrhoea [Unknown]
  - Fatigue [Unknown]

NARRATIVE: CASE EVENT DATE: 2020
